FAERS Safety Report 6978180-3 (Version None)
Quarter: 2010Q3

REPORT INFORMATION
  Report Type: 
  Country: None (occurrence: None)
  Receive Date: 20100913
  Receipt Date: 20100907
  Transmission Date: 20110219
  Serious: Yes (Other)
  Sender: FDA-Public Use
  Company Number: US-BAYER-201032263NA

PATIENT
  Sex: Female

DRUGS (1)
  1. MIRENA [Suspect]
     Indication: PRODUCT USED FOR UNKNOWN INDICATION
     Dosage: CONTINUOUS
     Route: 015
     Dates: start: 20100728

REACTIONS (6)
  - BURNING SENSATION [None]
  - CERVICAL DYSPLASIA [None]
  - FUNGAL INFECTION [None]
  - GENITAL DISCHARGE [None]
  - GENITAL HAEMORRHAGE [None]
  - PAIN [None]
